FAERS Safety Report 8887968 (Version 1)
Quarter: 2012Q4

REPORT INFORMATION
  Report Type: 
  Country: US (occurrence: US)
  Receive Date: 20121106
  Receipt Date: 20121106
  Transmission Date: 20130627
  Serious: Yes (Hospitalization, Disabling, Other)
  Sender: FDA-Public Use
  Company Number: US-ASTRAZENECA-2012SE82916

PATIENT
  Sex: Male

DRUGS (9)
  1. NEXIUM [Suspect]
     Route: 048
  2. METOPROLOL [Suspect]
     Route: 065
  3. CRESTOR [Suspect]
     Route: 048
  4. CYMBALTA [Concomitant]
  5. METFORMIN [Concomitant]
  6. HUMALOG [Concomitant]
     Dosage: 75/25
  7. ZETIA [Concomitant]
  8. TRIAMETINE HCZ [Concomitant]
  9. DICYCLOMINE [Concomitant]

REACTIONS (5)
  - Neoplasm malignant [Unknown]
  - Impaired work ability [Unknown]
  - Headache [Unknown]
  - Diabetes mellitus [Unknown]
  - Blood pressure increased [Unknown]
